FAERS Safety Report 19474495 (Version 2)
Quarter: 2021Q3

REPORT INFORMATION
  Report Type: Other
  Country: FR (occurrence: FR)
  Receive Date: 20210630
  Receipt Date: 20210810
  Transmission Date: 20211014
  Serious: Yes (Other)
  Sender: FDA-Public Use
  Company Number: FR-ROCHE-2854485

PATIENT
  Age: 48 Year
  Sex: Male
  Weight: 85 kg

DRUGS (5)
  1. MYCOPHENOLATE MOFETIL. [Suspect]
     Active Substance: MYCOPHENOLATE MOFETIL
     Indication: IMMUNOSUPPRESSION
     Dosage: 2000 UNK
     Route: 065
     Dates: start: 20201007, end: 20201022
  2. ADOPORT [Suspect]
     Active Substance: TACROLIMUS
     Route: 048
     Dates: start: 20201008
  3. ADOPORT [Suspect]
     Active Substance: TACROLIMUS
     Indication: RENAL TRANSPLANT
     Route: 048
     Dates: start: 20201008
  4. ADOPORT [Suspect]
     Active Substance: TACROLIMUS
     Route: 048
     Dates: start: 20201008
  5. ADOPORT [Suspect]
     Active Substance: TACROLIMUS
     Route: 048
     Dates: start: 20201008

REACTIONS (7)
  - Magnesium deficiency [Not Recovered/Not Resolved]
  - Thrombocytopenia [Recovered/Resolved]
  - Renal impairment [Recovered/Resolved]
  - Hypophosphataemia [Recovered/Resolved]
  - Drug level fluctuating [Not Recovered/Not Resolved]
  - Diarrhoea [Recovered/Resolved]
  - Hypokalaemia [Recovered/Resolved]

NARRATIVE: CASE EVENT DATE: 20201009
